FAERS Safety Report 5551627-5 (Version None)
Quarter: 2007Q4

REPORT INFORMATION
  Report Type: 
  Country: None (occurrence: None)
  Receive Date: 20071129
  Receipt Date: 20070402
  Transmission Date: 20080405
  Serious: Yes (Hospitalization)
  Sender: FDA-Public Use
  Company Number: US200606002844

PATIENT
  Age: 47 Year
  Sex: Female
  Weight: 74.8 kg

DRUGS (2)
  1. ZYPREXA [Suspect]
     Dosage: 5 MG, ORAL, 2.5 MG ORAL
     Route: 048
     Dates: start: 20020101, end: 20020801
  2. EFFEXOR [Concomitant]

REACTIONS (4)
  - DIABETES MELLITUS [None]
  - HYPERLIPIDAEMIA [None]
  - HYPERTENSION [None]
  - METABOLIC DISORDER [None]
